FAERS Safety Report 5593467-7 (Version None)
Quarter: 2008Q1

REPORT INFORMATION
  Report Type: 
  Country: None (occurrence: None)
  Receive Date: 20080116
  Receipt Date: 20080111
  Transmission Date: 20080703
  Serious: Yes (Death)
  Sender: FDA-Public Use
  Company Number: HR-BRISTOL-MYERS SQUIBB COMPANY-13983648

PATIENT
  Age: 47 Year
  Sex: Female

DRUGS (1)
  1. DASATINIB [Suspect]
     Route: 048
     Dates: start: 20071012, end: 20071021

REACTIONS (1)
  - PULMONARY EMBOLISM [None]
